FAERS Safety Report 9735961 (Version 1)
Quarter: 2013Q4

REPORT INFORMATION
  Report Type: Spontaneous
  Country: US (occurrence: US)
  Receive Date: 20131206
  Receipt Date: 20131206
  Transmission Date: 20140711
  Serious: Yes (Hospitalization)
  Sender: FDA-Public Use
  Company Number: US-BAXTER-2013BAX047841

PATIENT
  Sex: Male

DRUGS (9)
  1. DIANEAL LOW CALCIUM [Suspect]
     Indication: PERITONEAL DIALYSIS
     Route: 033
     Dates: end: 201311
  2. DIANEAL LOW CALCIUM [Suspect]
     Route: 033
  3. DIANEAL LOW CALCIUM [Suspect]
     Indication: PERITONEAL DIALYSIS
     Route: 033
     Dates: end: 201311
  4. DIANEAL LOW CALCIUM [Suspect]
     Route: 033
  5. DIANEAL PD2 [Suspect]
     Indication: PERITONEAL DIALYSIS
     Route: 033
     Dates: end: 201311
  6. DIANEAL PD2 [Suspect]
     Route: 033
  7. DIANEAL PD2 [Suspect]
     Indication: PERITONEAL DIALYSIS
     Route: 033
     Dates: end: 201311
  8. DIANEAL PD2 [Suspect]
     Route: 033
  9. EXTRANEAL [Suspect]
     Indication: PERITONEAL DIALYSIS
     Route: 033
     Dates: end: 201311

REACTIONS (5)
  - Urinary tract infection [Recovering/Resolving]
  - Hypophagia [Recovering/Resolving]
  - Hypotension [Recovering/Resolving]
  - Vital functions abnormal [Unknown]
  - Fluid overload [Recovering/Resolving]
